FAERS Safety Report 13412800 (Version 2)
Quarter: 2017Q4

REPORT INFORMATION
  Report Type: Spontaneous
  Country: US (occurrence: US)
  Receive Date: 20170406
  Receipt Date: 20171123
  Transmission Date: 20180320
  Serious: No
  Sender: FDA-Public Use
  Company Number: US-JNJFOC-20170308543

PATIENT
  Age: 15 Year
  Sex: Male

DRUGS (9)
  1. RISPERDAL [Suspect]
     Active Substance: RISPERIDONE
     Indication: MAJOR DEPRESSION
     Route: 048
  2. RISPERIDONE. [Suspect]
     Active Substance: RISPERIDONE
     Indication: GENERALISED ANXIETY DISORDER
     Route: 048
     Dates: start: 20111222, end: 20140220
  3. RISPERDAL [Suspect]
     Active Substance: RISPERIDONE
     Indication: GENERALISED ANXIETY DISORDER
     Route: 048
     Dates: start: 20140311
  4. RISPERDAL [Suspect]
     Active Substance: RISPERIDONE
     Indication: POST-TRAUMATIC STRESS DISORDER
     Route: 048
  5. RISPERDAL [Suspect]
     Active Substance: RISPERIDONE
     Indication: POST-TRAUMATIC STRESS DISORDER
     Route: 048
     Dates: start: 20140311
  6. RISPERDAL [Suspect]
     Active Substance: RISPERIDONE
     Indication: MAJOR DEPRESSION
     Route: 048
     Dates: start: 20140311
  7. RISPERDAL [Suspect]
     Active Substance: RISPERIDONE
     Indication: GENERALISED ANXIETY DISORDER
     Route: 048
  8. RISPERIDONE. [Suspect]
     Active Substance: RISPERIDONE
     Indication: POST-TRAUMATIC STRESS DISORDER
     Route: 048
     Dates: start: 20111222, end: 20140220
  9. RISPERIDONE. [Suspect]
     Active Substance: RISPERIDONE
     Indication: MAJOR DEPRESSION
     Route: 048
     Dates: start: 20111222, end: 20140220

REACTIONS (5)
  - Gynaecomastia [Unknown]
  - Emotional disorder [Unknown]
  - Drug prescribing error [Unknown]
  - Off label use [Unknown]
  - Product use in unapproved indication [Unknown]

NARRATIVE: CASE EVENT DATE: 20111222
